FAERS Safety Report 12218101 (Version 1)
Quarter: 2016Q1

REPORT INFORMATION
  Report Type: Report from Study
  Country: CA (occurrence: CA)
  Receive Date: 20160329
  Receipt Date: 20160329
  Transmission Date: 20160526
  Serious: Yes (Hospitalization)
  Sender: FDA-Public Use
  Company Number: PHHO2012CA019677

PATIENT
  Age: 43 Year
  Sex: Male
  Weight: 108.8 kg

DRUGS (15)
  1. PANTOLOC ^BYK GULDEN^ [Concomitant]
     Indication: GASTROOESOPHAGEAL REFLUX DISEASE
     Dosage: 20 MG, QD
     Route: 048
     Dates: start: 2008
  2. BENADRYL                           /00647601/ [Concomitant]
     Active Substance: CAMPHOR\DIPHENHYDRAMINE\ZINC OXIDE
     Indication: RASH
  3. RANITIDINE [Concomitant]
     Active Substance: RANITIDINE\RANITIDINE HYDROCHLORIDE
     Indication: GASTROOESOPHAGEAL REFLUX DISEASE
     Dosage: 150 MG, QD
     Route: 048
     Dates: start: 20120709
  4. PROBIOTICS NOS [Concomitant]
     Active Substance: PROBIOTICS NOS
     Indication: DIARRHOEA
     Dosage: 1 DF, QD
     Route: 048
     Dates: start: 20120524, end: 20120528
  5. GAVISCON [Concomitant]
     Active Substance: ALUMINUM HYDROXIDE\MAGNESIUM CARBONATE
     Indication: DYSPEPSIA
     Dosage: 6 DF, BID
     Route: 048
     Dates: start: 20120801, end: 20120801
  6. GSK2110183 [Suspect]
     Active Substance: AFURESERTIB
     Indication: CHRONIC LYMPHOCYTIC LEUKAEMIA
     Dosage: 125 MG, QD
     Route: 048
     Dates: start: 20120507, end: 20120808
  7. TYLENOL [Concomitant]
     Active Substance: ACETAMINOPHEN
     Indication: HEADACHE
     Dosage: 500-100 MG Q6 HR/ PRN
     Route: 048
     Dates: start: 1988
  8. OFATUMUMAB [Suspect]
     Active Substance: OFATUMUMAB
     Dosage: 200 MG, QW
     Route: 042
     Dates: start: 20120823
  9. CLOTRIMAZOLE. [Concomitant]
     Active Substance: CLOTRIMAZOLE
     Indication: RASH
     Dosage: BID
     Route: 061
     Dates: start: 20120629, end: 20120711
  10. ALLOPURINOL. [Concomitant]
     Active Substance: ALLOPURINOL
     Indication: PROPHYLAXIS
     Dosage: 300 MG, QD
     Route: 048
     Dates: start: 20120601
  11. GSK2110183 [Suspect]
     Active Substance: AFURESERTIB
     Dosage: 100 MG, QD
     Route: 048
     Dates: start: 20120823
  12. OFATUMUMAB [Suspect]
     Active Substance: OFATUMUMAB
     Indication: CHRONIC LYMPHOCYTIC LEUKAEMIA
     Dosage: 200 MG, QW
     Route: 042
     Dates: start: 20120614, end: 20120808
  13. MORPHINE [Concomitant]
     Active Substance: MORPHINE
     Indication: ABDOMINAL PAIN
     Dosage: 5-7.5 MG Q2HRS/ PRN
     Route: 048
     Dates: start: 20120315
  14. IBUPROFEN. [Concomitant]
     Active Substance: IBUPROFEN
     Indication: ABDOMINAL PAIN
     Dosage: 400 MG, Q6H
     Route: 048
     Dates: start: 20120528
  15. BENADRYL                           /00647601/ [Concomitant]
     Active Substance: CAMPHOR\DIPHENHYDRAMINE\ZINC OXIDE
     Indication: INFUSION RELATED REACTION
     Route: 065
     Dates: start: 20120614

REACTIONS (1)
  - Febrile neutropenia [Recovered/Resolved]

NARRATIVE: CASE EVENT DATE: 20120809
